FAERS Safety Report 5478979-9 (Version None)
Quarter: 2007Q4

REPORT INFORMATION
  Report Type: 
  Country: None (occurrence: None)
  Receive Date: 20071006
  Receipt Date: 20070925
  Transmission Date: 20080405
  Serious: Yes (Hospitalization)
  Sender: FDA-Public Use
  Company Number: FR-PFIZER INC-2007080351

PATIENT
  Age: 87 Year
  Sex: Male

DRUGS (12)
  1. CEFPODOXIME PROXETIL [Suspect]
     Indication: BRONCHITIS
     Dosage: DAILY DOSE:400MG
     Route: 048
     Dates: start: 20070124, end: 20070201
  2. MINISINTROM [Interacting]
     Indication: ATRIAL FIBRILLATION
     Dosage: DAILY DOSE:1MG
     Route: 048
  3. TAHOR [Concomitant]
     Indication: DYSLIPIDAEMIA
     Route: 048
  4. SECTRAL [Concomitant]
     Indication: HYPERTENSION
     Route: 048
  5. COZAAR [Concomitant]
     Indication: HYPERTENSION
     Route: 048
  6. CORVASAL [Concomitant]
     Indication: ANGINA PECTORIS
     Route: 048
  7. EXELON [Concomitant]
     Indication: DEMENTIA ALZHEIMER'S TYPE
     Route: 048
  8. ALL OTHER THERAPEUTIC PRODUCTS [Concomitant]
     Route: 048
  9. RESPILENE [Concomitant]
     Indication: COUGH
     Route: 048
     Dates: start: 20070124, end: 20070201
  10. RHINOTROPHYL [Concomitant]
     Indication: BRONCHITIS
     Route: 045
     Dates: start: 20070124, end: 20070201
  11. FOSAVANCE [Concomitant]
     Indication: OSTEOPOROSIS
     Route: 048
  12. CALCIUM GLUBIONATE [Concomitant]
     Route: 048

REACTIONS (3)
  - DRUG INTERACTION [None]
  - HAEMATOMA [None]
  - INTERNATIONAL NORMALISED RATIO INCREASED [None]
